FAERS Safety Report 16377059 (Version 1)
Quarter: 2019Q2

REPORT INFORMATION
  Report Type: Spontaneous
  Country: IT (occurrence: IT)
  Receive Date: 20190531
  Receipt Date: 20190531
  Transmission Date: 20190711
  Serious: Yes (Other)
  Sender: FDA-Public Use
  Company Number: PHHY2019IT122310

PATIENT
  Age: 86 Year
  Sex: Female

DRUGS (1)
  1. ASPIRIN. [Suspect]
     Active Substance: ASPIRIN
     Indication: ARTHRALGIA
     Dosage: UNK
     Route: 048

REACTIONS (1)
  - Laryngeal oedema [Recovered/Resolved]
